FAERS Safety Report 15229671 (Version 1)
Quarter: 2018Q3

REPORT INFORMATION
  Report Type: Report from Study
  Country: CO (occurrence: CO)
  Receive Date: 20180802
  Receipt Date: 20180802
  Transmission Date: 20181010
  Serious: Yes (Other)
  Sender: FDA-Public Use
  Company Number: CO-BRISTOL-MYERS SQUIBB COMPANY-BMS-2018-069565

PATIENT
  Age: 74 Year
  Sex: Female

DRUGS (1)
  1. NIVOLUMAB [Suspect]
     Active Substance: NIVOLUMAB
     Indication: LUNG NEOPLASM MALIGNANT
     Dosage: 180 MG, UNK
     Route: 042
     Dates: start: 20171121, end: 20180719

REACTIONS (4)
  - Weight decreased [Recovering/Resolving]
  - Gastrointestinal disorder [Recovering/Resolving]
  - Mucosal dryness [Recovering/Resolving]
  - Aphthous ulcer [Recovering/Resolving]

NARRATIVE: CASE EVENT DATE: 20180719
